FAERS Safety Report 9266603 (Version 1)
Quarter: 2013Q2

REPORT INFORMATION
  Report Type: Other
  Country: GB (occurrence: GB)
  Receive Date: 20130502
  Receipt Date: 20130502
  Transmission Date: 20140414
  Serious: Yes (Other)
  Sender: FDA-Public Use
  Company Number: GB-TARO PHARMACEUTICALS U.S.A., INC-2013SUN00513

PATIENT
  Age: 79 Year
  Sex: Male

DRUGS (5)
  1. WARFARIN [Suspect]
     Indication: ATRIAL FIBRILLATION
     Dosage: 5 MG, UNK
     Route: 065
  2. BCG LIVE [Suspect]
     Indication: BLADDER CANCER
     Route: 065
  3. AMIODARONE [Concomitant]
     Indication: CARDIAC DISORDER
     Dosage: 100 MG, OD
     Route: 048
  4. LOSARTAN [Concomitant]
     Indication: CARDIAC DISORDER
     Dosage: 20 MG, OD
     Route: 048
  5. SIMVASTATIN [Concomitant]
     Indication: CARDIAC DISORDER
     Dosage: 20 MG, OD
     Route: 048

REACTIONS (8)
  - Photopsia [Recovered/Resolved]
  - Local swelling [Recovered/Resolved]
  - Chromaturia [Recovered/Resolved]
  - Bladder cancer [Not Recovered/Not Resolved]
  - Rash [Recovered/Resolved]
  - Fatigue [Recovered/Resolved]
  - Asthenia [Recovered/Resolved]
  - Haemorrhage [Recovered/Resolved]
